FAERS Safety Report 4895436-9 (Version None)
Quarter: 2006Q1

REPORT INFORMATION
  Report Type: 
  Country: None (occurrence: None)
  Receive Date: 20060130
  Receipt Date: 20050531
  Transmission Date: 20060701
  Serious: No
  Sender: FDA-Public Use
  Company Number: US-GLAXOSMITHKLINE-A0560603A

PATIENT
  Age: 58 Year
  Sex: Male

DRUGS (5)
  1. EPIVIR [Suspect]
     Indication: HIV INFECTION
     Dosage: 150MG PER DAY
     Route: 048
     Dates: start: 20050501
  2. SUSTIVA [Concomitant]
  3. VIDEX [Concomitant]
  4. BACTRIM [Concomitant]
  5. ZITHROMAX [Concomitant]

REACTIONS (1)
  - VOMITING [None]
